FAERS Safety Report 13879451 (Version 1)
Quarter: 2017Q3

REPORT INFORMATION
  Report Type: Spontaneous
  Country: US (occurrence: US)
  Receive Date: 20170817
  Receipt Date: 20170817
  Transmission Date: 20171127
  Serious: No
  Sender: FDA-Public Use
  Company Number: US-ENDO PHARMACEUTICALS INC-2016-007370

PATIENT
  Sex: Female
  Weight: 61.29 kg

DRUGS (2)
  1. ZOMIG [Concomitant]
     Active Substance: ZOLMITRIPTAN
     Indication: MIGRAINE
  2. SUMAVEL DOSEPRO [Suspect]
     Active Substance: SUMATRIPTAN SUCCINATE
     Indication: MIGRAINE
     Dosage: 6 MG, AS NEEDED
     Route: 065
     Dates: start: 201310

REACTIONS (3)
  - Drug administered at inappropriate site [Unknown]
  - Injection site pain [Recovered/Resolved]
  - Injection site bruising [Recovered/Resolved]

NARRATIVE: CASE EVENT DATE: 2013
